FAERS Safety Report 8352723-X (Version None)
Quarter: 2012Q2

REPORT INFORMATION
  Report Type: 
  Country: None (occurrence: None)
  Receive Date: 20120511
  Receipt Date: 20120503
  Transmission Date: 20120825
  Serious: Yes (Congenital Anomaly)
  Sender: FDA-Public Use
  Company Number: US-UCBSA-056727

PATIENT
  Age: 1 Month
  Sex: Male

DRUGS (4)
  1. KEPPRA [Suspect]
     Route: 064
     Dates: end: 20110301
  2. KEPPRA [Suspect]
     Indication: EPILEPSY
     Route: 064
     Dates: start: 20110301, end: 20110625
  3. LEVETIRACETAM [Suspect]
     Indication: EPILEPSY
     Route: 064
     Dates: start: 20110625, end: 20110731
  4. OXCARBAZEPINE [Suspect]
     Indication: EPILEPSY
     Route: 064

REACTIONS (2)
  - HERNIA [None]
  - FOETAL EXPOSURE DURING PREGNANCY [None]
